FAERS Safety Report 6180818-8 (Version None)
Quarter: 2009Q2

REPORT INFORMATION
  Report Type: 
  Country: None (occurrence: None)
  Receive Date: 20090504
  Receipt Date: 20090504
  Transmission Date: 20091009
  Serious: Yes (Other)
  Sender: FDA-Public Use
  Company Number: None

PATIENT
  Age: 53 Year
  Sex: Male
  Weight: 83.9154 kg

DRUGS (1)
  1. LISINOPRIL [Suspect]

REACTIONS (5)
  - CHEST DISCOMFORT [None]
  - COLD SWEAT [None]
  - COUGH [None]
  - DIZZINESS [None]
  - DYSPNOEA [None]
